FAERS Safety Report 12335048 (Version 2)
Quarter: 2016Q2

REPORT INFORMATION
  Report Type: Spontaneous
  Country: ES (occurrence: ES)
  Receive Date: 20160504
  Receipt Date: 20160506
  Transmission Date: 20160815
  Serious: Yes (Hospitalization, Other)
  Sender: FDA-Public Use
  Company Number: ES-PFIZER INC-2016237689

PATIENT
  Age: 88 Year
  Sex: Female

DRUGS (8)
  1. LEVOFLOXACIN. [Suspect]
     Active Substance: LEVOFLOXACIN
     Indication: URINARY TRACT INFECTION
     Dosage: 250 MG, 1X/DAY
     Route: 042
     Dates: start: 20160303, end: 20160306
  2. APROVEL [Concomitant]
     Active Substance: IRBESARTAN
     Dosage: 150 MG, 1X/DAY (IN THE MORNING)
  3. EMCONCOR [Concomitant]
     Active Substance: BISOPROLOL FUMARATE
     Dosage: 2.5 MG, 1X/DAY
  4. LEVOFLOXACIN. [Suspect]
     Active Substance: LEVOFLOXACIN
     Dosage: 500 MG, UNK
     Route: 048
     Dates: start: 20160307
  5. TAMSULOSINA [Concomitant]
     Active Substance: TAMSULOSIN HYDROCHLORIDE
     Indication: HYPERTONIC BLADDER
     Dosage: 0.4 MG, 1X/DAY (AT DINNER)
     Route: 048
     Dates: start: 20160309
  6. OMEPRAZOLE. [Concomitant]
     Active Substance: OMEPRAZOLE
     Dosage: 20 MG, 1X/DAY (AT BREAKFAST)
  7. ADIRO [Concomitant]
     Active Substance: ASPIRIN
     Dosage: 100 MG, 1X/DAY (AT LUNCH)
  8. LYRICA [Suspect]
     Active Substance: PREGABALIN
     Indication: POST HERPETIC NEURALGIA
     Dosage: 50 MG, DAILY
     Route: 048
     Dates: start: 20110311, end: 20160311

REACTIONS (6)
  - Inappropriate antidiuretic hormone secretion [Unknown]
  - Inappropriate antidiuretic hormone secretion [Recovered/Resolved]
  - Seizure [Recovered/Resolved]
  - Urinary tract infection [Unknown]
  - Hypertonic bladder [Unknown]
  - Inappropriate antidiuretic hormone secretion [Unknown]

NARRATIVE: CASE EVENT DATE: 201104
